FAERS Safety Report 20164977 (Version 1)
Quarter: 2021Q4

REPORT INFORMATION
  Report Type: Spontaneous
  Country: RU (occurrence: RU)
  Receive Date: 20211209
  Receipt Date: 20211209
  Transmission Date: 20220303
  Serious: Yes (Other)
  Sender: FDA-Public Use
  Company Number: RU-VALIDUS PHARMACEUTICALS LLC-RU-VDP-2021-014665

PATIENT

DRUGS (4)
  1. TRENTAL [Suspect]
     Active Substance: PENTOXIFYLLINE
     Indication: Product used for unknown indication
     Dosage: 400 MG, BID
     Route: 048
     Dates: start: 2016, end: 2020
  2. TRENTAL [Suspect]
     Active Substance: PENTOXIFYLLINE
     Dosage: 400 MILLIGRAM, BID
     Route: 048
     Dates: start: 20211111
  3. DIOSMIN\HESPERIDIN [Suspect]
     Active Substance: DIOSMIN\HESPERIDIN
     Indication: Product used for unknown indication
     Dosage: 1000 MG, QD
     Route: 048
     Dates: start: 2016
  4. METFORMIN HYDROCHLORIDE [Concomitant]
     Active Substance: METFORMIN HYDROCHLORIDE
     Indication: Product used for unknown indication
     Dosage: UNK
     Route: 065

REACTIONS (2)
  - Rectal haemorrhage [Not Recovered/Not Resolved]
  - Product use in unapproved indication [Unknown]

NARRATIVE: CASE EVENT DATE: 20160101
